FAERS Safety Report 21221805 (Version 1)
Quarter: 2022Q3

REPORT INFORMATION
  Report Type: Report from Study
  Country: CN (occurrence: CN)
  Receive Date: 20220817
  Receipt Date: 20220817
  Transmission Date: 20221026
  Serious: Yes (Other)
  Sender: FDA-Public Use
  Company Number: CN-JNJFOC-20220823097

PATIENT

DRUGS (6)
  1. RISPERDAL [Suspect]
     Active Substance: RISPERIDONE
     Indication: Schizophrenia
     Dosage: THE DAILY DOSAGE WAS 1 MG (6 CASES)
     Route: 048
  2. RISPERDAL [Suspect]
     Active Substance: RISPERIDONE
     Indication: Schizophrenia
     Dosage: THE DAILY DOSAGE WAS 2 MG (20 CASES)
     Route: 048
  3. RISPERDAL [Suspect]
     Active Substance: RISPERIDONE
     Indication: Delusional disorder, unspecified type
     Dosage: THE DAILY DOSAGE WAS 3 MG (6 CASES)
     Route: 048
  4. RISPERDAL [Suspect]
     Active Substance: RISPERIDONE
     Dosage: THE DAILY DOSAGE WAS 4 MG (33 CASES)
     Route: 048
  5. RISPERDAL [Suspect]
     Active Substance: RISPERIDONE
     Dosage: THE DAILY DOSAGE 5 MG (2 CASES)
     Route: 048
  6. RISPERDAL [Suspect]
     Active Substance: RISPERIDONE
     Dosage: THE DAILY DOSAGE WAS 6 MG (25 CASES)
     Route: 048

REACTIONS (35)
  - Hepatocellular injury [Unknown]
  - Parkinsonism [Unknown]
  - Extrapyramidal disorder [Unknown]
  - Muscle tightness [Unknown]
  - Akathisia [Unknown]
  - Tremor [Unknown]
  - Musculoskeletal stiffness [Unknown]
  - Meige^s syndrome [Unknown]
  - Tachycardia [Unknown]
  - Sinus bradycardia [Unknown]
  - Palpitations [Unknown]
  - Nausea [Unknown]
  - Vomiting [Unknown]
  - Constipation [Unknown]
  - Dry mouth [Unknown]
  - Salivary hypersecretion [Unknown]
  - Salivary hypersecretion [Unknown]
  - Menstrual disorder [Unknown]
  - Amenorrhoea [Unknown]
  - Galactorrhoea [Unknown]
  - Amenorrhoea [Unknown]
  - Hepatic function abnormal [Unknown]
  - Insomnia [Unknown]
  - Somnolence [Unknown]
  - Mental disorder [Unknown]
  - Oedema peripheral [Unknown]
  - Asthenia [Unknown]
  - White blood cell count decreased [Unknown]
  - Dysuria [Unknown]
  - Blood triglycerides increased [Unknown]
  - Blood prolactin increased [Unknown]
  - Hiccups [Unknown]
  - Tic [Unknown]
  - Obsessive-compulsive symptom [Unknown]
  - Off label use [Unknown]
